FAERS Safety Report 24539870 (Version 1)
Quarter: 2024Q4

REPORT INFORMATION
  Report Type: Spontaneous
  Country: BE (occurrence: BE)
  Receive Date: 20241023
  Receipt Date: 20241023
  Transmission Date: 20250115
  Serious: Yes (Death, Life-Threatening, Hospitalization)
  Sender: PFIZER
  Company Number: BE-PFIZER INC-202400284148

PATIENT
  Sex: Male

DRUGS (1)
  1. LORLATINIB [Suspect]
     Active Substance: LORLATINIB
     Indication: Non-small cell lung cancer
     Dosage: 75 MG, DAILY
     Dates: start: 202405, end: 202406

REACTIONS (2)
  - Cerebral infarction [Fatal]
  - Pneumonitis [Fatal]

NARRATIVE: CASE EVENT DATE: 20240501
